FAERS Safety Report 6232264-6 (Version None)
Quarter: 2009Q2

REPORT INFORMATION
  Report Type: 
  Country: None (occurrence: None)
  Receive Date: 20090612
  Receipt Date: 20090601
  Transmission Date: 20091009
  Serious: Yes (Death, Life-Threatening, Hospitalization)
  Sender: FDA-Public Use
  Company Number: 2009S1000047

PATIENT
  Age: 73 Year
  Sex: Male
  Weight: 102 kg

DRUGS (3)
  1. CUBICIN [Suspect]
     Indication: STAPHYLOCOCCAL BACTERAEMIA
     Dosage: 6 MG/KG; Q24H; IV
     Route: 042
     Dates: start: 20081213, end: 20081229
  2. CUBICIN [Suspect]
     Indication: STAPHYLOCOCCAL OSTEOMYELITIS
     Dosage: 6 MG/KG; Q24H; IV
     Route: 042
     Dates: start: 20081213, end: 20081229
  3. VANCOMYCIN [Concomitant]

REACTIONS (14)
  - BLOOD BICARBONATE INCREASED [None]
  - BLOOD CREATINE PHOSPHOKINASE MB INCREASED [None]
  - BLOOD GLUCOSE INCREASED [None]
  - BLOOD PH INCREASED [None]
  - CARDIAC ARREST [None]
  - CARDIOPULMONARY FAILURE [None]
  - ENDOCARDITIS STAPHYLOCOCCAL [None]
  - HAEMATOCRIT DECREASED [None]
  - HAEMOGLOBIN DECREASED [None]
  - PATHOGEN RESISTANCE [None]
  - PROTHROMBIN TIME PROLONGED [None]
  - SEPSIS [None]
  - TREATMENT FAILURE [None]
  - TROPONIN INCREASED [None]
